FAERS Safety Report 6882518-5 (Version None)
Quarter: 2010Q3

REPORT INFORMATION
  Report Type: 
  Country: None (occurrence: None)
  Receive Date: 20100707
  Receipt Date: 20100224
  Transmission Date: 20110219
  Serious: Yes (Other)
  Sender: FDA-Public Use
  Company Number: 2010024410

PATIENT
  Sex: Female

DRUGS (1)
  1. QUINAPRIL HYDROCHLORIDE [Suspect]

REACTIONS (1)
  - HYPERSENSITIVITY [None]
